FAERS Safety Report 15386675 (Version 1)
Quarter: 2018Q3

REPORT INFORMATION
  Report Type: Spontaneous
  Country: FR (occurrence: FR)
  Receive Date: 20180914
  Receipt Date: 20180914
  Transmission Date: 20181010
  Serious: Yes (Life-Threatening, Hospitalization, Other)
  Sender: FDA-Public Use
  Company Number: FR-009507513-2011SP024742

PATIENT
  Age: 44 Year
  Sex: Female
  Weight: 100 kg

DRUGS (6)
  1. SODIUM BICARBONATE. [Concomitant]
     Active Substance: SODIUM BICARBONATE
     Indication: BLOOD BICARBONATE DECREASED
     Dosage: LONG TERM TREATMENT
     Route: 048
     Dates: end: 201105
  2. ALDALIX [Concomitant]
     Active Substance: FUROSEMIDE SODIUM\SPIRONOLACTONE
     Indication: HYPERTENSION
     Dosage: 20 MG. LONG TERM TREATMENT
     Route: 048
     Dates: end: 201105
  3. PRILOSEC [Concomitant]
     Active Substance: OMEPRAZOLE MAGNESIUM
     Indication: GASTROOESOPHAGEAL REFLUX DISEASE
     Dosage: 20 MG.LONG TERM TREATMENT
     Route: 048
     Dates: end: 201105
  4. ESMERON [Suspect]
     Active Substance: ROCURONIUM BROMIDE
     Indication: NEUROMUSCULAR BLOCKING THERAPY
     Dosage: IN TOTAL
     Route: 042
     Dates: start: 20110520, end: 20110520
  5. DIPRIVAN [Concomitant]
     Active Substance: PROPOFOL
     Indication: INDUCTION OF ANAESTHESIA
     Dosage: 250 MG, UNK
     Route: 042
     Dates: start: 20110520, end: 20110520
  6. SUFENTA [Concomitant]
     Active Substance: SUFENTANIL CITRATE
     Indication: INDUCTION OF ANAESTHESIA
     Dosage: 20 MICROGRAM, UNK
     Route: 042
     Dates: start: 20110520, end: 20110520

REACTIONS (6)
  - Bronchospasm [Recovered/Resolved]
  - Circulatory collapse [Recovered/Resolved]
  - Tachycardia [Recovered/Resolved]
  - Hypotension [Recovered/Resolved]
  - Anaphylactic shock [Recovered/Resolved]
  - Urticaria [Recovered/Resolved]

NARRATIVE: CASE EVENT DATE: 20110520
